FAERS Safety Report 7045661-6 (Version None)
Quarter: 2010Q4

REPORT INFORMATION
  Report Type: 
  Country: None (occurrence: None)
  Receive Date: 20101014
  Receipt Date: 20101013
  Transmission Date: 20110411
  Serious: Yes (Death)
  Sender: FDA-Public Use
  Company Number: CO-ROCHE-733361

PATIENT
  Sex: Female

DRUGS (2)
  1. AVASTIN [Suspect]
     Route: 048
     Dates: start: 20090819, end: 20100329
  2. TARCEVA [Suspect]
     Route: 048
     Dates: start: 20100509, end: 20100922

REACTIONS (1)
  - DISEASE PROGRESSION [None]
